FAERS Safety Report 21487194 (Version 1)
Quarter: 2022Q4

REPORT INFORMATION
  Report Type: Spontaneous
  Country: US (occurrence: US)
  Receive Date: 20221020
  Receipt Date: 20221020
  Transmission Date: 20230113
  Serious: Yes (Other)
  Sender: FDA-Public Use
  Company Number: US-PFIZER INC-PV202200069207

PATIENT
  Age: 34 Year
  Sex: Female

DRUGS (3)
  1. METRONIDAZOLE [Interacting]
     Active Substance: METRONIDAZOLE
     Indication: Vaginal infection
     Dosage: 250 MG, 3X/DAY
  2. LITHOBID [Interacting]
     Active Substance: LITHIUM CARBONATE
     Indication: Bipolar disorder
     Dosage: 1500 MG, DAILY
  3. LITHOBID [Interacting]
     Active Substance: LITHIUM CARBONATE
     Dosage: 900 MG, DAILY

REACTIONS (5)
  - Drug interaction [Recovering/Resolving]
  - Nephropathy toxic [Unknown]
  - Polyuria [Recovering/Resolving]
  - Nocturia [Recovered/Resolved]
  - Off label use [Unknown]
